FAERS Safety Report 6904643-2 (Version None)
Quarter: 2010Q3

REPORT INFORMATION
  Report Type: 
  Country: None (occurrence: None)
  Receive Date: 20100804
  Receipt Date: 20090619
  Transmission Date: 20110219
  Serious: Yes (Other)
  Sender: FDA-Public Use
  Company Number: US-PFIZER INC-2009210049

PATIENT
  Sex: Male

DRUGS (1)
  1. LYRICA [Suspect]
     Indication: DIABETIC NEUROPATHY
     Dates: start: 20090505

REACTIONS (3)
  - DIZZINESS [None]
  - DYSPNOEA [None]
  - LOCAL SWELLING [None]
